FAERS Safety Report 12567164 (Version 1)
Quarter: 2016Q3

REPORT INFORMATION
  Report Type: Spontaneous
  Country: GB (occurrence: GB)
  Receive Date: 20160718
  Receipt Date: 20160718
  Transmission Date: 20161109
  Serious: Yes (Other)
  Sender: FDA-Public Use
  Company Number: GB-MYLANLABS-2016M1028688

PATIENT

DRUGS (9)
  1. ALPHOSYL                           /00478801/ [Concomitant]
     Dosage: 1 DF, QD
     Dates: start: 20150506
  2. HYDROCORTISONE. [Concomitant]
     Active Substance: HYDROCORTISONE
     Dosage: 1 DF, BID (APPLY THINLY TO THE AFFECTED AREA(S).)
     Route: 061
     Dates: start: 20160428, end: 20160526
  3. LISINOPRIL. [Concomitant]
     Active Substance: LISINOPRIL
     Dosage: 1 DF, QD (HAVE ROUTINE BLOOD TESTS)
     Dates: start: 20150506
  4. CLOTRIMAZOLE. [Concomitant]
     Active Substance: CLOTRIMAZOLE
     Dosage: 1 GTT, TID (FOR 2 WEEKS)
     Route: 001
     Dates: start: 20160505, end: 20160519
  5. FYBOGEL [Concomitant]
     Active Substance: PLANTAGO OVATA SEED
     Dosage: UNK (USE AS DIRECTED.)
     Dates: start: 20150907
  6. GENTAMICIN. [Concomitant]
     Active Substance: GENTAMICIN
     Dosage: 2 GTT, QID (APPLY DROPS BILATERAL.)
     Dates: start: 20160428, end: 20160505
  7. CLARITHROMYCIN. [Suspect]
     Active Substance: CLARITHROMYCIN
     Dosage: UNK
     Dates: start: 20160317
  8. ADALAT [Concomitant]
     Active Substance: NIFEDIPINE
     Dosage: 1 DF, QD
     Dates: start: 20150506
  9. LANSOPRAZOLE. [Concomitant]
     Active Substance: LANSOPRAZOLE
     Dosage: 1 DF, QD
     Dates: start: 20150506

REACTIONS (2)
  - Lethargy [Unknown]
  - Somnolence [Recovered/Resolved]

NARRATIVE: CASE EVENT DATE: 20160629
